FAERS Safety Report 10073530 (Version 1)
Quarter: 2014Q2

REPORT INFORMATION
  Report Type: Spontaneous
  Country: BE (occurrence: IN)
  Receive Date: 20140411
  Receipt Date: 20140411
  Transmission Date: 20141212
  Serious: Yes (Hospitalization)
  Sender: FDA-Public Use
  Company Number: BE-009507513-1404ARE006204

PATIENT
  Age: 27 Year
  Sex: Female
  Weight: 52.2 kg

DRUGS (6)
  1. FOLLITROPIN BETA [Suspect]
     Indication: OVULATION INDUCTION
     Dosage: 187.5 IU, ON DAY 2 OF THE MENSTRUAL  CYCLE
  2. FOLLITROPIN BETA [Suspect]
     Indication: OOCYTE DONOR
  3. CETRORELIX ACETATE [Suspect]
     Indication: OVULATION INDUCTION
     Dosage: UNK
  4. CETRORELIX ACETATE [Suspect]
     Indication: OOCYTE DONOR
  5. DECAPEPTYL (TRIPTORELIN ACETATE) [Concomitant]
     Indication: OVULATION INDUCTION
     Dosage: UNK, QD
  6. DECAPEPTYL (TRIPTORELIN ACETATE) [Concomitant]
     Indication: OOCYTE DONOR

REACTIONS (2)
  - Abscess drainage [Recovered/Resolved]
  - Ovarian hyperstimulation syndrome [Unknown]
